FAERS Safety Report 16009023 (Version 2)
Quarter: 2019Q2

REPORT INFORMATION
  Report Type: Spontaneous
  Country: US (occurrence: US)
  Receive Date: 20190226
  Receipt Date: 20190426
  Transmission Date: 20190711
  Serious: No
  Sender: FDA-Public Use
  Company Number: US-009507513-1902USA004883

PATIENT
  Age: 34 Year
  Sex: Female

DRUGS (10)
  1. DOXYCYCLINE HYCLATE. [Concomitant]
     Active Substance: DOXYCYCLINE HYCLATE
  2. PREGNYL [Suspect]
     Active Substance: CHORIOGONADOTROPIN ALFA
     Indication: INFERTILITY FEMALE
     Dosage: DOSE AND CONCENTRATION: 10,000 UNITS, FREQUENCY AS DIRECTED
     Route: 058
     Dates: start: 20180909
  3. GANIRELIX ACETATE INJECTION [Suspect]
     Active Substance: GANIRELIX ACETATE
     Indication: INFERTILITY FEMALE
     Dosage: 250 MICROGRAM, QD
     Route: 058
  4. MENOPUR [Concomitant]
     Active Substance: FOLLITROPIN\LUTEINIZING HORMONE
  5. GONAL-F [Concomitant]
     Active Substance: FOLLITROPIN
  6. LEUPROLIDE [Concomitant]
     Active Substance: LEUPROLIDE
  7. METHYLPREDNISOLONE. [Concomitant]
     Active Substance: METHYLPREDNISOLONE
  8. DOXYCYCLINE. [Concomitant]
     Active Substance: DOXYCYCLINE
  9. CRINONE [Concomitant]
     Active Substance: PROGESTERONE
  10. PROGESTERONE. [Concomitant]
     Active Substance: PROGESTERONE

REACTIONS (1)
  - Injection site erythema [Not Recovered/Not Resolved]

NARRATIVE: CASE EVENT DATE: 201901
